FAERS Safety Report 11821006 (Version 1)
Quarter: 2015Q4

REPORT INFORMATION
  Report Type: Spontaneous
  Country: US (occurrence: US)
  Receive Date: 20151210
  Receipt Date: 20151210
  Transmission Date: 20160305
  Serious: No
  Sender: FDA-Public Use
  Company Number: US-JNJFOC-20150800392

PATIENT
  Sex: Male

DRUGS (1)
  1. IMBRUVICA [Suspect]
     Active Substance: IBRUTINIB
     Indication: WALDENSTROM^S MACROGLOBULINAEMIA
     Route: 048
     Dates: start: 20150514

REACTIONS (6)
  - Dehydration [Unknown]
  - Dizziness [Unknown]
  - Diarrhoea [Unknown]
  - Skin lesion [Unknown]
  - Vision blurred [Unknown]
  - Eye colour change [Unknown]

NARRATIVE: CASE EVENT DATE: 2015
